FAERS Safety Report 12702816 (Version 1)
Quarter: 2016Q3

REPORT INFORMATION
  Report Type: Report from Study
  Country: GB (occurrence: GB)
  Receive Date: 20160831
  Receipt Date: 20160831
  Transmission Date: 20161109
  Serious: Yes (Hospitalization, Other)
  Sender: FDA-Public Use
  Company Number: GB-SUN PHARMACEUTICAL INDUSTRIES LTD-2016R1-123078

PATIENT
  Age: 42 Year
  Sex: Male

DRUGS (1)
  1. PARACETAMOL [Suspect]
     Active Substance: ACETAMINOPHEN
     Indication: TOOTHACHE
     Dosage: UNK
     Route: 065

REACTIONS (3)
  - Encephalopathy [Recovering/Resolving]
  - Acute hepatic failure [Recovering/Resolving]
  - Overdose [Recovering/Resolving]
